FAERS Safety Report 6369620-1 (Version None)
Quarter: 2009Q3

REPORT INFORMATION
  Report Type: 
  Country: None (occurrence: None)
  Receive Date: 20090923
  Receipt Date: 20090911
  Transmission Date: 20100115
  Serious: Yes (Hospitalization)
  Sender: FDA-Public Use
  Company Number: US-ROCHE-652854

PATIENT
  Sex: Female
  Weight: 50.8 kg

DRUGS (4)
  1. BONIVA [Suspect]
     Indication: OSTEOPOROSIS
     Route: 048
     Dates: start: 20090821, end: 20090821
  2. NORVASC [Concomitant]
     Indication: HYPERTENSION
     Route: 048
  3. TOPROL-XL [Concomitant]
     Indication: HYPERTENSION
     Route: 048
  4. ARIMIDEX [Concomitant]
     Indication: POSTMENOPAUSE
     Route: 048

REACTIONS (2)
  - BONE PAIN [None]
  - MUSCLE SPASMS [None]
